FAERS Safety Report 8309372-9 (Version None)
Quarter: 2012Q2

REPORT INFORMATION
  Report Type: 
  Country: None (occurrence: None)
  Receive Date: 20120424
  Receipt Date: 20120424
  Transmission Date: 20120825
  Serious: Yes (Other)
  Sender: FDA-Public Use
  Company Number: None

PATIENT
  Age: 5 Year
  Sex: Female
  Weight: 28.8 kg

DRUGS (10)
  1. ACETAMINOPHEN [Concomitant]
  2. DEXTROSE 5% [Concomitant]
  3. ONDANSETRON [Concomitant]
  4. POTASSIUM CHLORIDE [Concomitant]
  5. ASPIRIN [Concomitant]
  6. FAMOTIDINE [Concomitant]
  7. IMMUNE GLOBULIN IV NOS [Suspect]
     Indication: KAWASAKI'S DISEASE
     Dosage: 60 GM/600 ML ONCE IV
     Route: 042
     Dates: start: 20120226, end: 20120229
  8. LIDOCAINE [Concomitant]
  9. CEFTRIAXONE [Concomitant]
  10. PANTOPRAZOLE [Concomitant]

REACTIONS (2)
  - HAEMOGLOBIN DECREASED [None]
  - HAEMOLYTIC ANAEMIA [None]
